FAERS Safety Report 23518079 (Version 1)
Quarter: 2024Q1

REPORT INFORMATION
  Report Type: Report from Study
  Country: CA (occurrence: CA)
  Receive Date: 20240213
  Receipt Date: 20240213
  Transmission Date: 20240410
  Serious: Yes (Hospitalization)
  Sender: FDA-Public Use
  Company Number: CA-TAKEDA-2024TUS012148

PATIENT
  Sex: Male

DRUGS (3)
  1. VEDOLIZUMAB [Suspect]
     Active Substance: VEDOLIZUMAB
     Indication: Colitis ulcerative
     Dosage: 300 MILLIGRAM
     Route: 042
     Dates: start: 20230321
  2. BUDESONIDE [Concomitant]
     Active Substance: BUDESONIDE
     Dosage: UNK
     Dates: start: 20230119
  3. MESALAMINE [Concomitant]
     Active Substance: MESALAMINE
     Dosage: 4.8 MILLIGRAM
     Dates: start: 2019

REACTIONS (2)
  - Asthma [Recovered/Resolved]
  - Influenza [Recovered/Resolved]
